FAERS Safety Report 20795452 (Version 1)
Quarter: 2022Q2

REPORT INFORMATION
  Report Type: Spontaneous
  Country: US (occurrence: None)
  Receive Date: 20220505
  Receipt Date: 20220505
  Transmission Date: 20220721
  Serious: Yes (Disabling)
  Sender: FDA-Public Use
  Company Number: None

PATIENT
  Age: 39 Year
  Sex: Female
  Weight: 69.75 kg

DRUGS (3)
  1. DYSPORT [Suspect]
     Active Substance: ABOBOTULINUMTOXINA
     Indication: Skin cosmetic procedure
     Dates: start: 20220114
  2. VITAMIN D [Concomitant]
     Active Substance: VITAMIN D NOS
  3. COPPER [Concomitant]
     Active Substance: COPPER

REACTIONS (19)
  - Sinus pain [None]
  - Paranasal sinus discomfort [None]
  - Head discomfort [None]
  - Sinusitis [None]
  - Fatigue [None]
  - Muscular weakness [None]
  - Dyspnoea exertional [None]
  - Depression [None]
  - Depressed mood [None]
  - Panic attack [None]
  - Anxiety [None]
  - Palpitations [None]
  - Heart rate increased [None]
  - Vitreous floaters [None]
  - Visual impairment [None]
  - Facial pain [None]
  - Bone pain [None]
  - Lymphadenopathy [None]
  - Headache [None]

NARRATIVE: CASE EVENT DATE: 20220119
